FAERS Safety Report 8902336 (Version 1)
Quarter: 2012Q4

REPORT INFORMATION
  Report Type: Report from Study
  Country: US (occurrence: US)
  Receive Date: 20121112
  Receipt Date: 20121112
  Transmission Date: 20130627
  Serious: Yes (Hospitalization)
  Sender: FDA-Public Use
  Company Number: US-ROCHE-1140395

PATIENT
  Age: 63 Year
  Sex: Male
  Weight: 69.5 kg

DRUGS (18)
  1. PEG-INTERFERON ALFA 2A [Suspect]
     Indication: HEPATITIS C
     Dosage: last dose of  PEG-INTERFERON ALFA 2A on 22/Aug/2012
     Route: 058
     Dates: start: 20120725, end: 20120822
  2. RIBAVIRIN [Suspect]
     Indication: HEPATITIS C
     Route: 048
     Dates: start: 20120725, end: 20120821
  3. RIBAVIRIN [Suspect]
     Route: 048
     Dates: start: 20120821, end: 20120828
  4. GS-7977 [Suspect]
     Indication: HEPATITIS C
     Route: 048
     Dates: start: 20120725, end: 20120825
  5. ALLEGRA [Concomitant]
     Route: 065
     Dates: start: 2008
  6. ASA (ACETYLSALICYLIC ACID) [Concomitant]
     Route: 065
     Dates: start: 2011
  7. HYDROCORTISONE [Concomitant]
     Route: 065
     Dates: start: 201201, end: 20120821
  8. DOXEPIN [Concomitant]
     Route: 065
     Dates: start: 20120730, end: 20120821
  9. HYDROXIZINE CHLORIDE [Concomitant]
     Route: 065
     Dates: start: 20120730, end: 201209
  10. BENADRYL [Concomitant]
     Route: 065
     Dates: start: 20120808, end: 20120821
  11. MEDROL [Concomitant]
     Route: 065
     Dates: start: 20120824, end: 20120829
  12. CHLORMEZANONE [Concomitant]
     Route: 065
     Dates: start: 20120831
  13. LAC-HYDRIN [Concomitant]
     Route: 065
     Dates: start: 20120831
  14. SERTRALINE [Concomitant]
     Route: 065
     Dates: start: 20120831, end: 20120923
  15. NEXIUM [Concomitant]
     Route: 065
     Dates: start: 20120906
  16. URSODIOL [Concomitant]
     Route: 065
     Dates: start: 20120706, end: 201209
  17. TRIAMCINOLONE [Concomitant]
     Route: 065
     Dates: start: 20120907, end: 201209
  18. ZITHROMAX Z-PAK [Concomitant]
     Route: 065
     Dates: start: 20120907, end: 20120912

REACTIONS (3)
  - Cryoglobulinaemia [Recovered/Resolved with Sequelae]
  - Anaemia [Recovered/Resolved]
  - Abdominal pain [Recovered/Resolved]
